FAERS Safety Report 20412182 (Version 1)
Quarter: 2022Q1

REPORT INFORMATION
  Report Type: Spontaneous
  Country: None (occurrence: US)
  Receive Date: 20220201
  Receipt Date: 20220201
  Transmission Date: 20220423
  Serious: No
  Sender: FDA-Public Use
  Company Number: US-Mission Pharmacal Company-2124503

PATIENT
  Age: 8 Year
  Sex: Male

DRUGS (1)
  1. THIOLA EC [Suspect]
     Active Substance: TIOPRONIN
     Indication: Cystinuria
     Route: 048
     Dates: start: 20201009

REACTIONS (3)
  - Dyspepsia [Unknown]
  - Breath odour [Unknown]
  - Gastrooesophageal reflux disease [Unknown]
